FAERS Safety Report 12442708 (Version 2)
Quarter: 2016Q3

REPORT INFORMATION
  Report Type: Spontaneous
  Country: FR (occurrence: FR)
  Receive Date: 20160607
  Receipt Date: 20160809
  Transmission Date: 20161109
  Serious: Yes (Other)
  Sender: FDA-Public Use
  Company Number: FR-GE HEALTHCARE MEDICAL DIAGNOSTICS-OSCN-PR-1606S-0089

PATIENT
  Age: 77 Year
  Sex: Female

DRUGS (28)
  1. OMNISCAN [Suspect]
     Active Substance: GADODIAMIDE
     Dosage: DOSE NOT REPORTED
     Route: 065
     Dates: start: 20150518, end: 20150518
  2. OMNISCAN [Suspect]
     Active Substance: GADODIAMIDE
     Dosage: DOSE NOT REPORTED
     Route: 065
     Dates: start: 20130923, end: 20130923
  3. DOTAREM [Suspect]
     Active Substance: GADOTERATE MEGLUMINE
     Indication: TINNITUS
     Dosage: DOSE NOT REPORTED
     Route: 065
     Dates: start: 20111220, end: 20111220
  4. LOPERAMIDE ARROW [Concomitant]
  5. OMNISCAN [Suspect]
     Active Substance: GADODIAMIDE
     Dosage: DOSE NOT REPORTED
     Route: 065
     Dates: start: 20130926, end: 20130926
  6. OMNISCAN [Suspect]
     Active Substance: GADODIAMIDE
     Dosage: DOSE NOT REPORTED
     Route: 065
     Dates: start: 20101210, end: 20101210
  7. DENOSUMAB [Concomitant]
     Active Substance: DENOSUMAB
  8. OMNISCAN [Suspect]
     Active Substance: GADODIAMIDE
     Dosage: DOSE NOT REPORTED
     Route: 065
     Dates: start: 20120823, end: 20120823
  9. DOTAREM [Suspect]
     Active Substance: GADOTERATE MEGLUMINE
     Indication: MUSCULAR WEAKNESS
     Dosage: DOSE NOT REPORTED
     Route: 065
     Dates: start: 20160527, end: 20160527
  10. DOTAREM [Suspect]
     Active Substance: GADOTERATE MEGLUMINE
     Indication: BALANCE DISORDER
     Dosage: DOSE NOT REPORTED
     Route: 065
     Dates: start: 20150212, end: 20150212
  11. DOTAREM [Suspect]
     Active Substance: GADOTERATE MEGLUMINE
     Indication: DIAGNOSTIC PROCEDURE
  12. SECTRAL [Concomitant]
     Active Substance: ACEBUTOLOL HYDROCHLORIDE
  13. CRESTOR [Concomitant]
     Active Substance: ROSUVASTATIN CALCIUM
  14. LANSOPRAZOLE. [Concomitant]
     Active Substance: LANSOPRAZOLE
  15. OMNISCAN [Suspect]
     Active Substance: GADODIAMIDE
     Indication: PRODUCT USED FOR UNKNOWN INDICATION
     Dosage: DOSE NOT REPORTED
     Route: 065
     Dates: start: 20151201, end: 20151201
  16. OMNISCAN [Suspect]
     Active Substance: GADODIAMIDE
     Dosage: DOSE NOT REPORTED
     Route: 065
     Dates: start: 20101213, end: 20101213
  17. HERCEPTIN [Concomitant]
     Active Substance: TRASTUZUMAB
  18. OMNISCAN [Suspect]
     Active Substance: GADODIAMIDE
     Indication: DIAGNOSTIC PROCEDURE
     Dosage: DOSE NOT REPORTED
     Route: 065
     Dates: start: 20150817, end: 20150817
  19. JANUMET [Concomitant]
     Active Substance: METFORMIN HYDROCHLORIDE\SITAGLIPTIN PHOSPHATE
  20. KARDEGIC [Concomitant]
     Active Substance: ASPIRIN LYSINE
  21. SEROPLEX [Concomitant]
     Active Substance: ESCITALOPRAM OXALATE
  22. LANTUS [Concomitant]
     Active Substance: INSULIN GLARGINE
  23. PERTUZUMAB [Concomitant]
     Active Substance: PERTUZUMAB
  24. TIORFANOR [Concomitant]
     Active Substance: RACECADOTRIL
  25. DOTAREM [Suspect]
     Active Substance: GADOTERATE MEGLUMINE
     Indication: EAR DISCOMFORT
  26. CALCIDOSE [Concomitant]
     Active Substance: CALCIUM CARBONATE
  27. COVERSYL [Concomitant]
     Active Substance: PERINDOPRIL
  28. ZOLPIDEM [Concomitant]
     Active Substance: ZOLPIDEM\ZOLPIDEM TARTRATE

REACTIONS (5)
  - Nuclear magnetic resonance imaging brain abnormal [Unknown]
  - Muscular weakness [Unknown]
  - Ear discomfort [Unknown]
  - Balance disorder [Unknown]
  - Tinnitus [Unknown]

NARRATIVE: CASE EVENT DATE: 201605
